FAERS Safety Report 11205793 (Version 2)
Quarter: 2015Q3

REPORT INFORMATION
  Report Type: Spontaneous
  Country: US (occurrence: US)
  Receive Date: 20150622
  Receipt Date: 20150723
  Transmission Date: 20151125
  Serious: No
  Sender: FDA-Public Use
  Company Number: US-BAYER-2015-346502

PATIENT
  Age: 41 Year
  Sex: Female
  Weight: 68.27 kg

DRUGS (1)
  1. MIRENA [Suspect]
     Active Substance: LEVONORGESTREL
     Indication: VAGINAL HAEMORRHAGE
     Dosage: 20 MCG/24HR, CONT
     Route: 015
     Dates: start: 20150528

REACTIONS (3)
  - Pruritus generalised [Not Recovered/Not Resolved]
  - Product use issue [None]
  - Tongue coated [None]

NARRATIVE: CASE EVENT DATE: 20150601
